FAERS Safety Report 7983332-X (Version None)
Quarter: 2011Q4

REPORT INFORMATION
  Report Type: 
  Country: None (occurrence: None)
  Receive Date: 20111215
  Receipt Date: 20111206
  Transmission Date: 20120403
  Serious: Yes (Hospitalization)
  Sender: FDA-Public Use
  Company Number: US-BAYER-2011-075597

PATIENT
  Age: 18 Year
  Sex: Female
  Weight: 102 kg

DRUGS (1)
  1. YAZ [Suspect]
     Indication: DYSMENORRHOEA
     Dosage: UNK
     Dates: start: 20080101, end: 20100101

REACTIONS (2)
  - GALLBLADDER INJURY [None]
  - INJURY [None]
